FAERS Safety Report 4714978-X (Version None)
Quarter: 2005Q3

REPORT INFORMATION
  Report Type: 
  Country: None (occurrence: None)
  Receive Date: 20050713
  Receipt Date: 20050629
  Transmission Date: 20060218
  Serious: Yes (Hospitalization)
  Sender: FDA-Public Use
  Company Number: 2005-DE-02499GD

PATIENT
  Age: 54 Year
  Sex: Female
  Weight: 95 kg

DRUGS (4)
  1. ALBUTEROL SULFATE HFA [Suspect]
     Indication: OBSTRUCTIVE AIRWAYS DISORDER
     Dosage: IN
     Route: 055
  2. CO-AMOXICLAV (AMOXICILLIN W/CLAVULANATE POTASSIUM) [Suspect]
     Indication: OBSTRUCTIVE AIRWAYS DISORDER
  3. METRONIDAZOLE [Suspect]
     Indication: OBSTRUCTIVE AIRWAYS DISORDER
  4. EPINEPHRINE [Suspect]
     Indication: OBSTRUCTIVE AIRWAYS DISORDER

REACTIONS (18)
  - ABSCESS [None]
  - DEPRESSED LEVEL OF CONSCIOUSNESS [None]
  - DYSPHAGIA [None]
  - DYSPNOEA [None]
  - ERYTHEMA [None]
  - INDURATION [None]
  - LARYNGEAL OEDEMA [None]
  - LUDWIG ANGINA [None]
  - OBSTRUCTIVE AIRWAYS DISORDER [None]
  - ORTHOPNOEA [None]
  - PHARYNGEAL OEDEMA [None]
  - PHARYNGOLARYNGEAL PAIN [None]
  - PYREXIA [None]
  - SPEECH DISORDER [None]
  - STRIDOR [None]
  - SWELLING [None]
  - TRISMUS [None]
  - WHITE BLOOD CELL COUNT INCREASED [None]
